FAERS Safety Report 8995729 (Version 9)
Quarter: 2013Q2

REPORT INFORMATION
  Report Type: Report from Study
  Country: US (occurrence: US)
  Receive Date: 20130103
  Receipt Date: 20130426
  Transmission Date: 20140414
  Serious: Yes (Death, Other)
  Sender: FDA-Public Use
  Company Number: US-AMGEN-USACT2012083794

PATIENT
  Age: 14 Year
  Sex: Female

DRUGS (30)
  1. CINACALCET HCL [Suspect]
     Indication: HYPERPARATHYROIDISM SECONDARY
     Dosage: UNK
     Dates: start: 20120719, end: 20121226
  2. ARANESP [Concomitant]
     Indication: ANAEMIA
     Dosage: 40 MUG, UNK
     Route: 058
     Dates: start: 20120703, end: 20121226
  3. CALCITRIOL [Concomitant]
     Indication: HYPERPARATHYROIDISM SECONDARY
     Dosage: 0.25 MUG, QD
     Route: 048
     Dates: start: 20120502, end: 20121226
  4. RENAGEL [Concomitant]
     Indication: HYPERPARATHYROIDISM SECONDARY
     Dosage: 400 MG, TID
     Route: 048
     Dates: start: 20120907, end: 20121108
  5. RENAGEL [Concomitant]
     Indication: HYPERPHOSPHATAEMIA
  6. TUMS [Concomitant]
     Indication: HYPERPARATHYROIDISM SECONDARY
     Dosage: 1600 MG, TID
     Dates: start: 20120405, end: 20121226
  7. VITAMIN D [Concomitant]
     Indication: HYPERPARATHYROIDISM SECONDARY
     Dosage: 1000 IU, QD
     Route: 048
     Dates: start: 20090901, end: 20121226
  8. VITAMIN D [Concomitant]
     Indication: BLOOD PARATHYROID HORMONE ABNORMAL
  9. ZOFRAN [Concomitant]
     Indication: NAUSEA
     Dosage: 4 MG, BID
     Route: 048
     Dates: start: 20120801, end: 20121227
  10. ZOFRAN [Concomitant]
     Indication: VOMITING
  11. ZOFRAN [Concomitant]
     Indication: DIARRHOEA
  12. PREDNISONE [Concomitant]
     Indication: IMMUNOSUPPRESSION
     Dosage: 10 MG, QD
     Route: 048
     Dates: start: 20121206, end: 20121226
  13. CALCIUM [Concomitant]
     Indication: HYPERPHOSPHATAEMIA
     Dosage: 5200 MG, TID
     Route: 048
     Dates: start: 20120405, end: 20121226
  14. CALCIUM [Concomitant]
     Indication: HYPOCALCAEMIA
  15. CELLCEPT [Concomitant]
     Indication: IMMUNOSUPPRESSION
     Dosage: 500 MG, BID
     Route: 048
     Dates: start: 20120606, end: 20121226
  16. IVIGLOB-EX [Concomitant]
     Indication: IMMUNOSUPPRESSION
     Dosage: 80 G, ONE TIME DOSE
     Dates: start: 20121205, end: 20121205
  17. AMLACTIN [Concomitant]
     Indication: KERATOSIS PILARIS
     Dosage: UNK UNK, QD
     Route: 061
     Dates: start: 20121108, end: 20121226
  18. HYDROCORTISONE [Concomitant]
     Indication: KERATOSIS PILARIS
     Dosage: UNK UNK, QD
     Route: 061
     Dates: start: 20121108, end: 20121226
  19. LABETALOL [Concomitant]
     Indication: HYPERTENSION
     Dosage: 300 MG, TID
     Route: 048
     Dates: start: 20120703, end: 20121226
  20. AMOXICILLIN [Concomitant]
     Indication: ASPLENIA
     Dosage: 250 MG, BID
     Route: 048
     Dates: start: 20120118, end: 20121226
  21. NEPHROVITE [Concomitant]
     Indication: RENAL FAILURE CHRONIC
     Dosage: UNK UNK, QD
     Route: 048
     Dates: start: 20071017, end: 20121226
  22. FLONASE [Concomitant]
     Indication: NASAL CONGESTION
     Dosage: 200 MUG, QD
     Route: 055
     Dates: start: 20100505, end: 20121226
  23. GENTAMYCIN [Concomitant]
     Indication: INDWELLING CATHETER MANAGEMENT
     Dosage: UNK UNK, QOD
     Route: 061
     Dates: start: 20071017, end: 20121226
  24. LORATADINE [Concomitant]
     Indication: SEASONAL ALLERGY
     Dosage: 10 MG, QD
     Route: 048
     Dates: start: 20100602, end: 20121226
  25. COZAAR [Concomitant]
     Indication: HYPERTENSION
     Dosage: 100 MG, QD
     Route: 048
     Dates: start: 20110202, end: 20121226
  26. RANITIDINE [Concomitant]
     Indication: RENAL FAILURE CHRONIC
     Dosage: 150 MG, QD
     Route: 048
     Dates: start: 20120703, end: 20121227
  27. NORVASC [Concomitant]
     Dosage: 10 MG, UNK
  28. CALCITROL [Concomitant]
     Dosage: 0.25 MUG, UNK
  29. IMMUNOGLOBULIN [Concomitant]
     Dosage: 80 G, UNK
     Dates: start: 20121205
  30. AUGMENTIN [Concomitant]
     Dosage: 875 MG, AS NECESSARY

REACTIONS (2)
  - Cardiopulmonary failure [Fatal]
  - Hypocalcaemia [Unknown]
